FAERS Safety Report 8807302 (Version 2)
Quarter: 2012Q4

REPORT INFORMATION
  Report Type: 
  Country: FR (occurrence: FR)
  Receive Date: 20120925
  Receipt Date: 20121008
  Transmission Date: 20130627
  Serious: Yes (Other)
  Sender: FDA-Public Use
  Company Number: FR-ABBOTT-12P-056-0980705-00

PATIENT
  Sex: Male
  Weight: 70 kg

DRUGS (4)
  1. HUMIRA [Suspect]
     Indication: CROHN^S DISEASE
     Route: 058
     Dates: start: 200701, end: 201206
  2. IMUREL [Concomitant]
     Indication: CROHN^S DISEASE
     Route: 048
     Dates: start: 200701, end: 2011
  3. IMUREL [Concomitant]
     Route: 048
     Dates: start: 2011, end: 201206
  4. IMUREL [Concomitant]
     Route: 048
     Dates: start: 201206

REACTIONS (1)
  - Colitis ulcerative [Recovered/Resolved]
